FAERS Safety Report 14230751 (Version 1)
Quarter: 2017Q4

REPORT INFORMATION
  Report Type: Spontaneous
  Country: US (occurrence: US)
  Receive Date: 20171128
  Receipt Date: 20171128
  Transmission Date: 20180321
  Serious: No
  Sender: FDA-Public Use
  Company Number: US-PFIZER INC-2017506931

PATIENT
  Age: 49 Year
  Sex: Female
  Weight: 98.43 kg

DRUGS (1)
  1. LYRICA [Suspect]
     Active Substance: PREGABALIN
     Indication: RESTLESS LEGS SYNDROME
     Dosage: 50 MG, 2X/DAY
     Route: 048
     Dates: start: 201705, end: 201711

REACTIONS (3)
  - Product use in unapproved indication [Unknown]
  - Insomnia [Unknown]
  - Pain in extremity [Unknown]
